FAERS Safety Report 5134126-4 (Version None)
Quarter: 2006Q4

REPORT INFORMATION
  Report Type: 
  Country: None (occurrence: None)
  Receive Date: 20061024
  Receipt Date: 20061017
  Transmission Date: 20070319
  Serious: Yes (Hospitalization, Other)
  Sender: FDA-Public Use
  Company Number: US-ABBOTT-06P-163-0347036-00

PATIENT
  Age: 65 Year
  Sex: Male

DRUGS (5)
  1. CYCLOSPORINE [Suspect]
     Indication: IMMUNOSUPPRESSION
  2. PREDNISONE TAB [Suspect]
     Indication: IMMUNOSUPPRESSION
  3. MYCOPHENOLATE MOFETIL [Suspect]
     Indication: IMMUNOSUPPRESSION
  4. MYCOPHENOLATE MOFETIL [Suspect]
     Dosage: NOT REPORTED
  5. VALGANCICLOVIR HCL [Concomitant]
     Indication: ANTIVIRAL PROPHYLAXIS
     Dosage: NOT REPORTED

REACTIONS (4)
  - CYTOMEGALOVIRUS INFECTION [None]
  - GASTROENTERITIS CRYPTOSPORIDIAL [None]
  - LEPROSY [None]
  - RENAL FAILURE [None]
